FAERS Safety Report 21747637 (Version 1)
Quarter: 2022Q4

REPORT INFORMATION
  Report Type: Spontaneous
  Country: DE (occurrence: DE)
  Receive Date: 20221219
  Receipt Date: 20221219
  Transmission Date: 20230112
  Serious: Yes (Other)
  Sender: FDA-Public Use
  Company Number: DE-ViiV Healthcare Limited-DE2022GSK187739

PATIENT

DRUGS (2)
  1. ABACAVIR SULFATE\DOLUTEGRAVIR SODIUM\LAMIVUDINE [Interacting]
     Active Substance: ABACAVIR SULFATE\DOLUTEGRAVIR SODIUM\LAMIVUDINE
     Indication: HIV infection
     Dosage: 600/300/50 MG
     Dates: start: 2016
  2. PREGABALIN [Concomitant]
     Active Substance: PREGABALIN
     Indication: Product used for unknown indication
     Dosage: 150 MG, BID
     Dates: end: 202207

REACTIONS (7)
  - Pathogen resistance [Unknown]
  - HIV viraemia [Recovered/Resolved]
  - Virologic failure [Recovered/Resolved]
  - Viral mutation identified [Unknown]
  - Antiviral drug level below therapeutic [Recovered/Resolved]
  - Food interaction [Unknown]
  - Treatment failure [Unknown]
